FAERS Safety Report 9181435 (Version 1)
Quarter: 2013Q1

REPORT INFORMATION
  Report Type: Spontaneous
  Country: US (occurrence: None)
  Receive Date: 20120621
  Receipt Date: 20120621
  Transmission Date: 20140127
  Serious: Yes (Hospitalization, Other)
  Sender: FDA-Public Use
  Company Number: 032736

PATIENT
  Sex: Female
  Weight: 49.9 kg

DRUGS (6)
  1. CIMZIA [Suspect]
     Dosage: 2 SHOTS
     Dates: start: 20101019, end: 201102
  2. METHOTREXATE [Concomitant]
  3. FOLIC ACID [Concomitant]
  4. VITAMINS NOS [Concomitant]
  5. OXYCODONE [Concomitant]
  6. NEXIUM [Concomitant]

REACTIONS (2)
  - Crohn^s disease [None]
  - Small intestinal obstruction [None]
